FAERS Safety Report 10270281 (Version 2)
Quarter: 2014Q3

REPORT INFORMATION
  Report Type: Spontaneous
  Country: GB (occurrence: None)
  Receive Date: 20140627
  Receipt Date: 20140711
  Transmission Date: 20150326
  Serious: Yes (Life-Threatening, Hospitalization, Disabling, Other)
  Sender: FDA-Public Use
  Company Number: AUR-APL-2014-06678

PATIENT
  Age: 41 Year
  Sex: Male
  Weight: 119 kg

DRUGS (9)
  1. SUMATRIPTAN (SUMATRIPTAN) [Concomitant]
     Active Substance: SUMATRIPTAN
  2. SUMATRIPTAN [Suspect]
     Active Substance: SUMATRIPTAN
     Indication: MIGRAINE
     Dates: start: 2004, end: 20140507
  3. BENDROFLUMETHIAZIDE (BENDROFLUMETHIAZIDE) [Concomitant]
     Active Substance: BENDROFLUMETHIAZIDE
  4. CETIRIZINE (CETIRIZINE) [Concomitant]
     Active Substance: CETIRIZINE HYDROCHLORIDE
  5. CLENIL MODULITE (BECLOMETASONE DIPROPIONATE) [Concomitant]
  6. SALBUTAMOL (SALBUTAMOL) [Concomitant]
     Active Substance: ALBUTEROL
  7. DICLOFENAC [Suspect]
     Active Substance: DICLOFENAC
     Indication: BACK PAIN
     Dosage: 50 MG, ONCE DAILY AS NECESSARY, ORAL
     Route: 048
     Dates: start: 2004
  8. DOXAZOSIN [Concomitant]
     Active Substance: DOXAZOSIN\DOXAZOSIN MESYLATE
  9. OMEPRAZOLE (OMEPRAZOLE) [Concomitant]
     Active Substance: OMEPRAZOLE

REACTIONS (5)
  - Hypertension [None]
  - Aphasia [None]
  - Asthma [None]
  - Haemorrhagic stroke [None]
  - Cerebral haemorrhage [None]

NARRATIVE: CASE EVENT DATE: 20140409
